FAERS Safety Report 18798413 (Version 2)
Quarter: 2021Q1

REPORT INFORMATION
  Report Type: Report from Study
  Country: IT (occurrence: IT)
  Receive Date: 20210128
  Receipt Date: 20210203
  Transmission Date: 20210419
  Serious: Yes (Death)
  Sender: FDA-Public Use
  Company Number: NVSC2021IT018287

PATIENT
  Sex: Male
  Weight: 80 kg

DRUGS (1)
  1. INC280 [Suspect]
     Active Substance: CAPMATINIB
     Indication: NON-SMALL CELL LUNG CANCER
     Dosage: 800 MG
     Route: 048
     Dates: start: 20201209, end: 20210113

REACTIONS (2)
  - Malignant neoplasm progression [Fatal]
  - Non-small cell lung cancer [Fatal]
